FAERS Safety Report 22881786 (Version 4)
Quarter: 2023Q4

REPORT INFORMATION
  Report Type: Spontaneous
  Country: NL (occurrence: NL)
  Receive Date: 20230830
  Receipt Date: 20231121
  Transmission Date: 20240109
  Serious: Yes (Other)
  Sender: FDA-Public Use
  Company Number: NL-MITHRA PHARMACEUTICALS-01582

PATIENT
  Age: 49 Year
  Sex: Female

DRUGS (2)
  1. ETHINYL ESTRADIOL\LEVONORGESTREL [Suspect]
     Active Substance: ETHINYL ESTRADIOL\LEVONORGESTREL
     Indication: Heavy menstrual bleeding
     Dosage: UNK
     Route: 048
  2. TRANEXAMIC ACID [Suspect]
     Active Substance: TRANEXAMIC ACID
     Indication: Heavy menstrual bleeding
     Dosage: UNK
     Route: 048

REACTIONS (2)
  - Deep vein thrombosis [Recovered/Resolved]
  - Product use in unapproved indication [Unknown]
